FAERS Safety Report 9888605 (Version 2)
Quarter: 2014Q1

REPORT INFORMATION
  Report Type: Spontaneous
  Country: FR (occurrence: FR)
  Receive Date: 20140211
  Receipt Date: 20140219
  Transmission Date: 20141002
  Serious: Yes (Death, Other)
  Sender: FDA-Public Use
  Company Number: PHHY2014FR015305

PATIENT
  Age: 27 Year
  Sex: Male
  Weight: 67 kg

DRUGS (2)
  1. METHADONE [Suspect]
     Dosage: 30 MG, DAILY
  2. VALIUM [Interacting]
     Dosage: 50 MG, DAILY

REACTIONS (6)
  - Toxicity to various agents [Fatal]
  - Mendelson^s syndrome [Unknown]
  - Asphyxia [Unknown]
  - Regurgitation [Unknown]
  - Drug interaction [Unknown]
  - Overdose [Unknown]
